FAERS Safety Report 6978221-3 (Version None)
Quarter: 2010Q3

REPORT INFORMATION
  Report Type: 
  Country: None (occurrence: None)
  Receive Date: 20100913
  Receipt Date: 20100906
  Transmission Date: 20110219
  Serious: Yes (Death, Other)
  Sender: FDA-Public Use
  Company Number: ES-ELI_LILLY_AND_COMPANY-ES201009001997

PATIENT
  Sex: Female
  Weight: 75 kg

DRUGS (3)
  1. FORTEO [Suspect]
     Indication: OSTEOPOROSIS
     Dosage: 20 UG, DAILY (1/D)
     Route: 048
     Dates: start: 20100501, end: 20100801
  2. ACETAMINOPHEN [Concomitant]
     Dosage: 1 G, UNKNOWN
     Route: 048
  3. IBUPROFEN [Concomitant]
     Dosage: 600 MG, UNKNOWN
     Route: 048

REACTIONS (4)
  - BLOOD BLISTER [None]
  - DEATH [None]
  - GANGRENE [None]
  - PAIN IN EXTREMITY [None]
